FAERS Safety Report 7110210-0 (Version None)
Quarter: 2010Q4

REPORT INFORMATION
  Report Type: 
  Country: None (occurrence: None)
  Receive Date: 20101117
  Receipt Date: 20101117
  Transmission Date: 20110411
  Serious: Yes (Other)
  Sender: FDA-Public Use
  Company Number: None

PATIENT
  Age: 64 Year
  Sex: Female
  Weight: 68.0396 kg

DRUGS (3)
  1. FEMARA [Suspect]
     Indication: BREAST CANCER
     Dosage: 1 MG 1/DAY MOUTH
     Route: 048
     Dates: start: 20101028, end: 20101110
  2. ANASTROZOLE [Suspect]
     Indication: BREAST CANCER
     Dosage: 1 MG 1/DAY BY MOUTH
     Route: 048
     Dates: start: 20100823, end: 20100914
  3. ANASTROZOLE [Suspect]
     Indication: BREAST CANCER
     Dosage: 1 MG 1/DAY BY MOUTH
     Route: 048
     Dates: start: 20100806

REACTIONS (2)
  - EYE SWELLING [None]
  - SWELLING FACE [None]
